FAERS Safety Report 23982771 (Version 1)
Quarter: 2024Q2

REPORT INFORMATION
  Report Type: Spontaneous
  Country: US (occurrence: None)
  Receive Date: 20240617
  Receipt Date: 20240617
  Transmission Date: 20240716
  Serious: Yes (Hospitalization)
  Sender: FDA-Public Use
  Company Number: None

PATIENT
  Age: 68 Year
  Sex: Female
  Weight: 81 kg

DRUGS (8)
  1. MOUNJARO [Suspect]
     Active Substance: TIRZEPATIDE
     Indication: Diabetes mellitus
     Dosage: OTHER QUANTITY : 1 INJECTION(S);?OTHER FREQUENCY : WEEKLY;?
     Route: 030
     Dates: start: 20221001, end: 20240605
  2. XARELTO [Concomitant]
     Active Substance: RIVAROXABAN
  3. EZETIMIBE [Concomitant]
     Active Substance: EZETIMIBE
  4. METFORMIN [Concomitant]
     Active Substance: METFORMIN HYDROCHLORIDE
  5. TOPROL XL [Concomitant]
     Active Substance: METOPROLOL SUCCINATE
  6. ALBUTEROL [Concomitant]
     Active Substance: ALBUTEROL
  7. CETIRIZINE [Concomitant]
     Active Substance: CETIRIZINE HYDROCHLORIDE
  8. VITAMINS [Concomitant]
     Active Substance: VITAMINS

REACTIONS (12)
  - Pancreatitis acute [None]
  - Atelectasis [None]
  - Hepatic steatosis [None]
  - Biliary dilatation [None]
  - Renal cyst [None]
  - Hysterectomy [None]
  - Spinal osteoarthritis [None]
  - Scoliosis [None]
  - Umbilical hernia [None]
  - Hepatectomy [None]
  - Cholecystectomy [None]
  - Renal cyst [None]

NARRATIVE: CASE EVENT DATE: 20240613
